FAERS Safety Report 9862520 (Version 2)
Quarter: 2014Q1

REPORT INFORMATION
  Report Type: Spontaneous
  Country: US (occurrence: US)
  Receive Date: 20140203
  Receipt Date: 20140203
  Transmission Date: 20141002
  Serious: No
  Sender: FDA-Public Use
  Company Number: US-BAXTER-2013BAX007651

PATIENT
  Sex: 0

DRUGS (1)
  1. 10% DEXTROSE INJECTION USP [Suspect]
     Indication: PRODUCT USED FOR UNKNOWN INDICATION
     Route: 065

REACTIONS (3)
  - Incorrect drug administration rate [Recovered/Resolved]
  - Device infusion issue [Recovered/Resolved]
  - No adverse event [Recovered/Resolved]
